FAERS Safety Report 16076919 (Version 1)
Quarter: 2019Q2

REPORT INFORMATION
  Report Type: Spontaneous
  Country: US (occurrence: US)
  Receive Date: 20190314
  Receipt Date: 20190314
  Transmission Date: 20190711
  Serious: Yes (Other)
  Sender: FDA-Public Use
  Company Number: None

PATIENT
  Age: 62 Year
  Sex: Male
  Weight: 77.85 kg

DRUGS (1)
  1. DICLOFENAC SODIUM TOPICAL GEL 1% [Suspect]
     Active Substance: DICLOFENAC SODIUM
     Indication: LIMB INJURY
     Dosage: ?          QUANTITY:2 2 GRAMS;?
     Route: 061
     Dates: start: 20190226, end: 20190309

REACTIONS (3)
  - Palpitations [None]
  - Cardiomegaly [None]
  - Drug intolerance [None]

NARRATIVE: CASE EVENT DATE: 20190309
